FAERS Safety Report 4535704-3 (Version None)
Quarter: 2004Q4

REPORT INFORMATION
  Report Type: 
  Country: None (occurrence: None)
  Receive Date: 20041223
  Receipt Date: 20031211
  Transmission Date: 20050328
  Serious: No
  Sender: FDA-Public Use
  Company Number: US-GLAXOSMITHKLINE-A0442792A

PATIENT
  Age: 86 Year
  Sex: Female
  Weight: 70.5 kg

DRUGS (4)
  1. FLONASE [Suspect]
     Route: 045
     Dates: start: 20030101
  2. VALTREX [Concomitant]
  3. PREMARIN [Concomitant]
     Route: 065
  4. SYNTHROID [Concomitant]

REACTIONS (2)
  - ANOSMIA [None]
  - HERPES ZOSTER [None]
